FAERS Safety Report 7708820-2 (Version None)
Quarter: 2011Q3

REPORT INFORMATION
  Report Type: 
  Country: None (occurrence: None)
  Receive Date: 20110825
  Receipt Date: 20110822
  Transmission Date: 20111222
  Serious: Yes (Hospitalization)
  Sender: FDA-Public Use
  Company Number: US-GILEAD-2011-0042617

PATIENT
  Sex: Female

DRUGS (2)
  1. LETAIRIS [Suspect]
     Indication: PULMONARY HYPERTENSION
     Route: 048
     Dates: start: 20110725, end: 20110812
  2. ADCIRCA [Concomitant]

REACTIONS (6)
  - SYNCOPE [None]
  - UNEVALUABLE EVENT [None]
  - HYPOTENSION [None]
  - CHEST PAIN [None]
  - SCLERODERMA [None]
  - MENTAL DISORDER [None]
